FAERS Safety Report 13611132 (Version 2)
Quarter: 2017Q4

REPORT INFORMATION
  Report Type: Report from Study
  Country: US (occurrence: US)
  Receive Date: 20170605
  Receipt Date: 20171228
  Transmission Date: 20180320
  Serious: No
  Sender: FDA-Public Use
  Company Number: PHEH2017US016809

PATIENT
  Age: 70 Year
  Sex: Female

DRUGS (2)
  1. COSENTYX [Suspect]
     Active Substance: SECUKINUMAB
     Dosage: 300 MG, QW
     Route: 058
     Dates: start: 20170526
  2. COSENTYX [Suspect]
     Active Substance: SECUKINUMAB
     Indication: PSORIASIS
     Dosage: 300 MG, QW
     Route: 058
     Dates: start: 20170505

REACTIONS (10)
  - Fatigue [Recovered/Resolved]
  - Pyrexia [Unknown]
  - Rash [Unknown]
  - Pruritus [Unknown]
  - Abdominal pain upper [Recovered/Resolved]
  - Nasal congestion [Unknown]
  - Drug ineffective [Recovering/Resolving]
  - Sinusitis [Recovering/Resolving]
  - Influenza like illness [Recovered/Resolved]
  - Bronchitis [Recovering/Resolving]

NARRATIVE: CASE EVENT DATE: 20170505
